FAERS Safety Report 6716255-4 (Version None)
Quarter: 2010Q2

REPORT INFORMATION
  Report Type: 
  Country: None (occurrence: None)
  Receive Date: 20100507
  Receipt Date: 20100426
  Transmission Date: 20101027
  Serious: Yes (Other)
  Sender: FDA-Public Use
  Company Number: US-JNJFOC-20100407497

PATIENT
  Sex: Male
  Weight: 72.58 kg

DRUGS (5)
  1. REMICADE [Suspect]
     Indication: CROHN'S DISEASE
     Route: 042
  2. REMICADE [Suspect]
     Dosage: START DATE SUMMER OF 2009
     Route: 042
  3. FLOVENT [Concomitant]
     Indication: ASTHMA
     Dosage: 2 PUFFS
     Route: 055
  4. VITAMIN TAB [Concomitant]
     Indication: ROUTINE HEALTH MAINTENANCE
  5. GARDEN OF LIFE PROBIOTIC [Concomitant]
     Indication: DYSPEPSIA

REACTIONS (3)
  - DYSPNOEA [None]
  - EYE SWELLING [None]
  - SWELLING FACE [None]
